FAERS Safety Report 16614395 (Version 1)
Quarter: 2019Q3

REPORT INFORMATION
  Report Type: Report from Study
  Country: None (occurrence: US)
  Receive Date: 20190723
  Receipt Date: 20190723
  Transmission Date: 20191004
  Serious: Yes (Hospitalization)
  Sender: FDA-Public Use
  Company Number: US-ABBVIE-19K-163-2782878-00

PATIENT
  Age: 59 Year
  Sex: Female

DRUGS (1)
  1. HUMIRA [Suspect]
     Active Substance: ADALIMUMAB
     Indication: RHEUMATOID ARTHRITIS
     Route: 058
     Dates: start: 20190411

REACTIONS (17)
  - Ocular discomfort [Unknown]
  - Fatigue [Not Recovered/Not Resolved]
  - Chest discomfort [Unknown]
  - Rash [Recovered/Resolved]
  - Grip strength decreased [Unknown]
  - Renal impairment [Unknown]
  - Joint stiffness [Unknown]
  - Vision blurred [Unknown]
  - Pain [Unknown]
  - Red blood cell sedimentation rate increased [Unknown]
  - Headache [Unknown]
  - Wrong technique in product usage process [Unknown]
  - Joint swelling [Unknown]
  - Groin pain [Recovered/Resolved]
  - Gait disturbance [Unknown]
  - Discomfort [Unknown]
  - Incorrect dose administered [Unknown]

NARRATIVE: CASE EVENT DATE: 2019
